FAERS Safety Report 25963196 (Version 1)
Quarter: 2025Q4

REPORT INFORMATION
  Report Type: Spontaneous
  Country: US (occurrence: None)
  Receive Date: 20251024
  Receipt Date: 20251024
  Transmission Date: 20260117
  Serious: Yes (Hospitalization)
  Sender: FDA-CTU
  Company Number: None

PATIENT
  Sex: Male

DRUGS (1)
  1. SKYRIZI [Suspect]
     Active Substance: RISANKIZUMAB-RZAA
     Indication: Inflammatory bowel disease
     Dosage: OTHER FREQUENCY : EVER 8 WEEKS;?STRENGTH: 360MG/2.4M
     Route: 058
     Dates: start: 20221117

REACTIONS (1)
  - Obstruction gastric [None]
